FAERS Safety Report 20932045 (Version 1)
Quarter: 2022Q2

REPORT INFORMATION
  Report Type: Spontaneous
  Country: US (occurrence: None)
  Receive Date: 20220607
  Receipt Date: 20220607
  Transmission Date: 20220721
  Serious: Yes (Other)
  Sender: FDA-Public Use
  Company Number: None

PATIENT
  Age: 63 Year
  Sex: Female

DRUGS (14)
  1. PAXLOVID [Suspect]
     Active Substance: NIRMATRELVIR\RITONAVIR
     Indication: COVID-19
     Dates: start: 20220520, end: 20220524
  2. ASCORBBIC ACID [Concomitant]
  3. ASPIRIN [Concomitant]
  4. CALCIUM + Vit. D [Concomitant]
  5. COSENZYME Q10 [Concomitant]
  6. ESCITOLOPRAM [Concomitant]
  7. GABOPENTIN [Concomitant]
  8. IBUPROFEN [Concomitant]
  9. MAGNESIUM CITRATE [Concomitant]
  10. MELATONIN [Concomitant]
     Active Substance: MELATONIN
  11. METOPROLOL TARTRATE [Concomitant]
  12. MULTIVITAMIN [Concomitant]
  13. ROSUVASTATIN [Concomitant]
     Active Substance: ROSUVASTATIN
  14. VITAMIN B COMPLEX [Concomitant]

REACTIONS (4)
  - Fatigue [None]
  - Headache [None]
  - Nonspecific reaction [None]
  - SARS-CoV-2 test positive [None]

NARRATIVE: CASE EVENT DATE: 20220531
